FAERS Safety Report 7582718-5 (Version None)
Quarter: 2011Q2

REPORT INFORMATION
  Report Type: 
  Country: None (occurrence: None)
  Receive Date: 20110630
  Receipt Date: 20110622
  Transmission Date: 20111010
  Serious: Yes (Hospitalization, Other)
  Sender: FDA-Public Use
  Company Number: JP-JNJFOC-20101002321

PATIENT
  Age: 65 Year
  Sex: Female
  Weight: 45 kg

DRUGS (6)
  1. PURSENNID [Concomitant]
     Route: 048
  2. ITRACONAZOLE [Suspect]
     Indication: ORAL CANDIDIASIS
     Route: 048
     Dates: start: 20100928, end: 20101005
  3. MUCOSTA [Concomitant]
     Route: 048
  4. LIPITOR [Concomitant]
     Route: 048
  5. AMOBAN [Concomitant]
     Route: 048
  6. ACINON [Concomitant]
     Route: 048

REACTIONS (3)
  - LOSS OF CONSCIOUSNESS [None]
  - DRUG ERUPTION [None]
  - ABDOMINAL PAIN UPPER [None]
